FAERS Safety Report 8107453-6 (Version None)
Quarter: 2012Q1

REPORT INFORMATION
  Report Type: 
  Country: None (occurrence: None)
  Receive Date: 20120202
  Receipt Date: 20120126
  Transmission Date: 20120608
  Serious: Yes (Hospitalization)
  Sender: FDA-Public Use
  Company Number: CA-B.I. PHARMACEUTICALS,INC./RIDGEFIELD-2012-BP-01704BP

PATIENT
  Sex: Male
  Weight: 90 kg

DRUGS (7)
  1. GLYBURIDE [Concomitant]
     Indication: DIABETES MELLITUS
     Dosage: 2.5 MG
     Route: 048
     Dates: start: 20050501
  2. TIOPRONIN [Suspect]
     Indication: CHRONIC OBSTRUCTIVE PULMONARY DISEASE
     Dosage: 5 MCG
     Route: 055
     Dates: start: 20100902, end: 20111215
  3. METOPROLOL TARTRATE [Concomitant]
     Indication: HYPERTENSION
     Dosage: 200 MG
     Route: 048
     Dates: start: 20050501
  4. ADVAIR DISKUS 100/50 [Concomitant]
     Indication: CHRONIC OBSTRUCTIVE PULMONARY DISEASE
     Dosage: 1000 MCG
     Route: 055
     Dates: start: 20011101
  5. NORVASC [Concomitant]
     Indication: HYPERTENSION
     Dosage: 100 MG
     Route: 048
     Dates: start: 20050501
  6. EXELON [Concomitant]
     Indication: AMNESIA
     Dosage: 4.6 MG
     Route: 061
     Dates: start: 20110918
  7. COZAAR [Concomitant]
     Indication: HYPERTENSION
     Dosage: 100 MG
     Route: 048
     Dates: start: 20050501

REACTIONS (5)
  - URINARY TRACT INFECTION [None]
  - AMNESIA [None]
  - HERPES ZOSTER [None]
  - FALL [None]
  - BENIGN PROSTATIC HYPERPLASIA [None]
